FAERS Safety Report 11749037 (Version 3)
Quarter: 2016Q4

REPORT INFORMATION
  Report Type: Spontaneous
  Country: CA (occurrence: CA)
  Receive Date: 20151118
  Receipt Date: 20161116
  Transmission Date: 20170206
  Serious: Yes (Other)
  Sender: FDA-Public Use
  Company Number: CA-BEH-2014040368

PATIENT
  Age: 33 Year
  Sex: Male
  Weight: 77 kg

DRUGS (1)
  1. PRIVIGEN [Suspect]
     Active Substance: HUMAN IMMUNOGLOBULIN G
     Indication: MULTIFOCAL MOTOR NEUROPATHY

REACTIONS (8)
  - Platelet count decreased [Unknown]
  - Liver function test increased [Unknown]
  - Nausea [Unknown]
  - Headache [Unknown]
  - Haemolysis [Unknown]
  - Pyrexia [Unknown]
  - Aspartate aminotransferase increased [Unknown]
  - Rash [Unknown]

NARRATIVE: CASE EVENT DATE: 201103
